FAERS Safety Report 10091581 (Version 1)
Quarter: 2014Q2

REPORT INFORMATION
  Report Type: Spontaneous
  Country: US (occurrence: US)
  Receive Date: 20140421
  Receipt Date: 20140421
  Transmission Date: 20141212
  Serious: Yes (Hospitalization)
  Sender: FDA-Public Use
  Company Number: US-GILEAD-2014-0099999

PATIENT
  Sex: Male

DRUGS (12)
  1. SOVALDI [Suspect]
     Indication: HEPATITIS C
     Dosage: UNK
     Route: 065
     Dates: start: 201403
  2. PEGINTERFERON ALFA [Concomitant]
     Indication: HEPATITIS C
     Dosage: UNK
     Dates: start: 201403
  3. RIBAVIRIN [Concomitant]
     Indication: HEPATITIS C
     Dosage: UNK
     Dates: start: 201403
  4. LITHIUM [Concomitant]
  5. DOXEPIN [Concomitant]
  6. ETFORMIN [Concomitant]
  7. GLYBURIDE [Concomitant]
  8. LISINOPRIL [Concomitant]
  9. LABETALOL [Concomitant]
  10. SERTRALINE [Concomitant]
  11. AMLODIPINE [Concomitant]
  12. LANTUS [Concomitant]

REACTIONS (3)
  - Dyskinesia [Not Recovered/Not Resolved]
  - Muscle twitching [Unknown]
  - Fall [Unknown]
